FAERS Safety Report 11252211 (Version 2)
Quarter: 2015Q3

REPORT INFORMATION
  Report Type: Spontaneous
  Country: US (occurrence: US)
  Receive Date: 20150708
  Receipt Date: 20150708
  Transmission Date: 20151125
  Serious: Yes (Death)
  Sender: FDA-Public Use
  Company Number: US-ELI_LILLY_AND_COMPANY-US201304005247

PATIENT
  Sex: Male
  Weight: 69 kg

DRUGS (6)
  1. ALIMTA [Suspect]
     Active Substance: PEMETREXED DISODIUM
     Indication: NON-SMALL CELL LUNG CANCER
     Dosage: 769 MG, EVERY 21 DAYS
     Route: 042
     Dates: start: 20120823, end: 20121206
  2. FOLIC ACID. [Concomitant]
     Active Substance: FOLIC ACID
     Dosage: 1 MG, UNKNOWN
     Route: 048
     Dates: start: 20120823
  3. VITAMIN B12 [Concomitant]
     Active Substance: CYANOCOBALAMIN
     Dosage: 1000 UG, UNKNOWN
     Route: 030
     Dates: start: 20120816
  4. DEXAMETHASONE. [Concomitant]
     Active Substance: DEXAMETHASONE
     Dosage: UNK, UNKNOWN
  5. GEMZAR [Suspect]
     Active Substance: GEMCITABINE HYDROCHLORIDE
     Indication: NON-SMALL CELL LUNG CANCER
     Dosage: 1420 MG, EVERY 21 DAYS
     Route: 042
     Dates: start: 20130110, end: 20130214
  6. TYLENOL                                 /SCH/ [Concomitant]
     Dosage: UNK, UNKNOWN

REACTIONS (1)
  - Malignant neoplasm progression [Fatal]
